FAERS Safety Report 15699767 (Version 2)
Quarter: 2019Q1

REPORT INFORMATION
  Report Type: Spontaneous
  Country: PL (occurrence: PL)
  Receive Date: 20181207
  Receipt Date: 20190307
  Transmission Date: 20190417
  Serious: Yes (Death, Other)
  Sender: FDA-Public Use
  Company Number: PL-ROCHE-2220800

PATIENT
  Age: 44 Year
  Sex: Male
  Weight: 80 kg

DRUGS (2)
  1. ZELBORAF [Suspect]
     Active Substance: VEMURAFENIB
     Indication: MALIGNANT MELANOMA
     Dosage: 4 TABLETS OF  TWICE PER DAY  FOR EVERY DAY 1-DAY 28
     Route: 048
     Dates: start: 20180525, end: 20181105
  2. COTELLIC [Suspect]
     Active Substance: COBIMETINIB
     Indication: MALIGNANT MELANOMA
     Dosage: 3 TABLETS OF 20 MG EACH ONCE PER DAY / DAY 1-21 /
     Route: 048
     Dates: start: 20180525

REACTIONS (11)
  - Pleural disorder [Unknown]
  - Epilepsy [Unknown]
  - Acne [Unknown]
  - Cerebral disorder [Unknown]
  - Rash [Unknown]
  - General physical health deterioration [Unknown]
  - Malignant melanoma [Fatal]
  - Genital rash [Unknown]
  - Solar dermatitis [Unknown]
  - Pneumothorax [Unknown]
  - Skin exfoliation [Unknown]

NARRATIVE: CASE EVENT DATE: 20180611
